FAERS Safety Report 12755777 (Version 1)
Quarter: 2016Q3

REPORT INFORMATION
  Report Type: Spontaneous
  Country: FR (occurrence: FR)
  Receive Date: 20160916
  Receipt Date: 20160916
  Transmission Date: 20161109
  Serious: Yes (Other)
  Sender: FDA-Public Use
  Company Number: FR-ABBVIE-16P-056-1729303-00

PATIENT
  Sex: Male

DRUGS (1)
  1. DEPAKINE [Suspect]
     Active Substance: VALPROATE SODIUM
     Indication: MATERNAL EXPOSURE TIMING UNSPECIFIED
     Route: 064

REACTIONS (5)
  - Hypermobility syndrome [Recovered/Resolved with Sequelae]
  - Speech disorder [Recovered/Resolved]
  - Foetal exposure during pregnancy [Unknown]
  - Abnormal behaviour [Recovered/Resolved]
  - Dysgraphia [Recovered/Resolved]
